FAERS Safety Report 8623234-9 (Version None)
Quarter: 2012Q3

REPORT INFORMATION
  Report Type: 
  Country: None (occurrence: None)
  Receive Date: 20120827
  Receipt Date: 20120818
  Transmission Date: 20120928
  Serious: Yes (Other)
  Sender: FDA-Public Use
  Company Number: US-US-EMD SERONO, INC.-7155925

PATIENT
  Sex: Female

DRUGS (1)
  1. REBIF [Suspect]
     Indication: MULTIPLE SCLEROSIS
     Route: 058
     Dates: start: 20010204

REACTIONS (5)
  - MUSCLE SPASMS [None]
  - MUSCLE RIGIDITY [None]
  - INJECTION SITE PAIN [None]
  - TYPE 2 DIABETES MELLITUS [None]
  - HEADACHE [None]
